FAERS Safety Report 7930796 (Version 2)
Quarter: 2012Q4

REPORT INFORMATION
  Report Type: 
  Country: US (occurrence: None)
  Receive Date: 20110415
  Receipt Date: 20120910
  Transmission Date: 20130627
  Serious: Yes (Hospitalization, Other)
  Sender: FDA-Public Use
  Company Number: AUR-APL-2011-01153

PATIENT
  Age: 25 Year
  Sex: Male

DRUGS (3)
  1. LAMOTRIGINE [Suspect]
     Indication: GENERALISED TONIC-CLONIC SEIZURE
     Route: 048
  2. LAMOTRIGINE [Suspect]
     Indication: GENERALISED TONIC-CLONIC SEIZURE
     Route: 048
  3. LEVETIRACETAM [Concomitant]

REACTIONS (3)
  - Oculogyric crisis [None]
  - Toxicity to various agents [None]
  - Accidental overdose [None]
